FAERS Safety Report 7228145-1 (Version None)
Quarter: 2011Q1

REPORT INFORMATION
  Report Type: 
  Country: None (occurrence: None)
  Receive Date: 20110106
  Receipt Date: 20101222
  Transmission Date: 20110831
  Serious: Yes (Other)
  Sender: FDA-Public Use
  Company Number: 10-592

PATIENT
  Age: 75 Year
  Sex: Female
  Weight: 57 kg

DRUGS (8)
  1. OXYCODONE HCL [Concomitant]
  2. GABAPENTIN [Concomitant]
  3. ALEVE (NAPROXEN) TABLET, 220 MG, BAYER [Suspect]
     Indication: HEADACHE
     Dosage: 220 MG, QOD
     Dates: start: 20101210
  4. MULTI-VITAMIN [Concomitant]
  5. PREDNISONE [Concomitant]
  6. CHLORDIAZEPOXIDE [Concomitant]
  7. ALEVE (NAPROXEN) LIQUID GEL, 220 MG, BPI [Suspect]
     Indication: HEADACHE
     Dosage: 220 MG, QOD
     Dates: start: 20101210
  8. THYROID TAB [Concomitant]

REACTIONS (6)
  - RETCHING [None]
  - BLOOD PRESSURE INCREASED [None]
  - NAUSEA [None]
  - DIZZINESS [None]
  - SLEEP APNOEA SYNDROME [None]
  - PALPITATIONS [None]
